FAERS Safety Report 9714358 (Version 1)
Quarter: 2013Q4

REPORT INFORMATION
  Report Type: Spontaneous
  Country: US (occurrence: US)
  Receive Date: 20131126
  Receipt Date: 20131126
  Transmission Date: 20140711
  Serious: Yes (Other)
  Sender: FDA-Public Use
  Company Number: US-PFIZER INC-2013336023

PATIENT
  Age: 60 Year
  Sex: Female
  Weight: 68.03 kg

DRUGS (5)
  1. CELEBREX [Suspect]
     Indication: INFLAMMATION
     Dosage: 200 MG, AS NEEDED
  2. LYRICA [Suspect]
     Indication: NEURALGIA
     Dosage: 150 MG, 2X/DAY
  3. ROBAXIN [Concomitant]
     Indication: MUSCLE SPASMS
     Dosage: 500 MG, 2X/DAY
  4. XANAX [Concomitant]
     Indication: SLEEP DISORDER
     Dosage: 0.5 MG, 1X/DAY
  5. PERCOCET [Concomitant]
     Dosage: HALF TABLET OF OXYCODONE HYDROCHLORIDE 5MG/ PARACETAMOL 325MG

REACTIONS (1)
  - Back disorder [Unknown]
